FAERS Safety Report 7378534-X (Version None)
Quarter: 2011Q1

REPORT INFORMATION
  Report Type: 
  Country: None (occurrence: None)
  Receive Date: 20110328
  Receipt Date: 20110324
  Transmission Date: 20110831
  Serious: Yes (Life-Threatening)
  Sender: FDA-Public Use
  Company Number: JP-ASTRAZENECA-2011SE09237

PATIENT
  Age: 66 Year
  Sex: Female
  Weight: 62 kg

DRUGS (14)
  1. ZANTAC [Concomitant]
     Indication: BREAST CANCER
     Route: 041
     Dates: start: 20081017, end: 20090130
  2. PURSENNID [Concomitant]
     Indication: CONSTIPATION PROPHYLAXIS
     Route: 048
     Dates: start: 20081017, end: 20090130
  3. DECADRON [Concomitant]
     Indication: BREAST CANCER
     Route: 041
     Dates: start: 20081017, end: 20090130
  4. SEISHOKU [Suspect]
     Indication: BREAST CANCER
     Route: 041
     Dates: start: 20081017, end: 20090130
  5. ENDOXAN [Suspect]
     Indication: BREAST CANCER
     Route: 041
     Dates: start: 20081017, end: 20090130
  6. SHIOSOL [Concomitant]
     Indication: RHEUMATOID ARTHRITIS
     Dosage: DOSE UNKNOWN
     Route: 065
     Dates: start: 20010801, end: 20100828
  7. FARMORUBICIN [Suspect]
     Indication: BREAST CANCER
     Route: 041
     Dates: start: 20081017, end: 20090130
  8. ARIMIDEX [Suspect]
     Indication: BREAST CANCER
     Route: 048
     Dates: start: 20090224, end: 20110218
  9. SEISHOKU [Suspect]
     Route: 041
     Dates: start: 20081017, end: 20090130
  10. NAUZELIN [Concomitant]
     Indication: PROPHYLAXIS OF NAUSEA AND VOMITING
     Route: 054
     Dates: start: 20081017, end: 20090130
  11. SEISHOKU [Suspect]
     Route: 041
     Dates: start: 20081017, end: 20090130
  12. KYTRIL [Concomitant]
     Route: 041
     Dates: start: 20081017, end: 20090130
  13. FLUOROURACIL [Suspect]
     Indication: BREAST CANCER
     Route: 041
     Dates: start: 20081017, end: 20090130
  14. KYTRIL [Concomitant]
     Indication: BREAST CANCER
     Route: 041
     Dates: start: 20081017, end: 20090130

REACTIONS (1)
  - ACUTE MYELOID LEUKAEMIA [None]
